FAERS Safety Report 12767721 (Version 1)
Quarter: 2016Q3

REPORT INFORMATION
  Report Type: Report from Study
  Country: US (occurrence: US)
  Receive Date: 20160921
  Receipt Date: 20160921
  Transmission Date: 20161109
  Serious: Yes (Hospitalization, Other)
  Sender: FDA-Public Use
  Company Number: US-SA-2016SA058116

PATIENT
  Age: 58 Year
  Sex: Female

DRUGS (3)
  1. FABRAZYME [Suspect]
     Active Substance: AGALSIDASE BETA
     Indication: FABRY^S DISEASE
     Route: 041
     Dates: start: 20110405, end: 201602
  2. FABRAZYME [Suspect]
     Active Substance: AGALSIDASE BETA
     Indication: FABRY^S DISEASE
     Route: 041
     Dates: start: 20160309, end: 201606
  3. FABRAZYME [Suspect]
     Active Substance: AGALSIDASE BETA
     Indication: FABRY^S DISEASE
     Route: 041
     Dates: start: 2016

REACTIONS (13)
  - Abdominal pain [Recovering/Resolving]
  - Asthenia [Recovering/Resolving]
  - Confusional state [Recovering/Resolving]
  - Activities of daily living impaired [Not Recovered/Not Resolved]
  - Influenza [Recovering/Resolving]
  - Weight decreased [Recovering/Resolving]
  - Dyspnoea [Recovering/Resolving]
  - Pyrexia [Recovering/Resolving]
  - Cardiac disorder [Recovering/Resolving]
  - Disorientation [Recovering/Resolving]
  - Myocardial infarction [Not Recovered/Not Resolved]
  - Dementia [Not Recovered/Not Resolved]
  - Pneumonia [Recovering/Resolving]

NARRATIVE: CASE EVENT DATE: 201602
